FAERS Safety Report 6518816-4 (Version None)
Quarter: 2009Q4

REPORT INFORMATION
  Report Type: 
  Country: None (occurrence: None)
  Receive Date: 20091228
  Receipt Date: 20091217
  Transmission Date: 20100525
  Serious: Yes (Other)
  Sender: FDA-Public Use
  Company Number: FR-ASTRAZENECA-2009SE32534

PATIENT
  Age: 76 Year
  Sex: Male

DRUGS (11)
  1. SYMBICORT [Suspect]
     Indication: CHRONIC OBSTRUCTIVE PULMONARY DISEASE
     Route: 055
  2. CIPROFLOXACIN EG [Suspect]
     Indication: PYELONEPHRITIS
     Route: 048
     Dates: start: 20090713, end: 20090723
  3. PREVISCAN [Concomitant]
  4. CANDESARTAN CILEXETIL/HYDROCHLOROTHIAZIDE (ATACAND HCT) [Concomitant]
  5. CORDARONE [Concomitant]
  6. LASILIX [Concomitant]
  7. DIFFU K [Concomitant]
  8. SPIRIVA [Concomitant]
  9. ALLOPURINOL [Concomitant]
  10. LEVOTHYROXINE SODIUM [Concomitant]
  11. ROCEPHIN [Concomitant]
     Indication: PYELONEPHRITIS
     Dates: start: 20090713, end: 20090723

REACTIONS (2)
  - TENDON RUPTURE [None]
  - TENDONITIS [None]
